FAERS Safety Report 16044775 (Version 1)
Quarter: 2019Q1

REPORT INFORMATION
  Report Type: Spontaneous
  Country: CH (occurrence: CH)
  Receive Date: 20190307
  Receipt Date: 20190307
  Transmission Date: 20190418
  Serious: Yes (Other)
  Sender: FDA-Public Use
  Company Number: CH-LUPIN PHARMACEUTICALS INC.-2019-01113

PATIENT
  Age: 68 Year
  Sex: Male
  Weight: 73 kg

DRUGS (4)
  1. RIFAMPIN. [Suspect]
     Active Substance: RIFAMPIN
     Dosage: 450 MILLIGRAM, SINGLE
     Route: 048
     Dates: start: 2017
  2. RIFAMPIN. [Suspect]
     Active Substance: RIFAMPIN
     Indication: PULMONARY TUBERCULOSIS
     Dosage: 700 MILLIGRAM, QD
     Route: 048
     Dates: start: 2008
  3. DAPTOMYCIN. [Concomitant]
     Active Substance: DAPTOMYCIN
     Indication: DEVICE RELATED INFECTION
     Dosage: UNK
     Route: 065
  4. RIFAMPIN. [Suspect]
     Active Substance: RIFAMPIN
     Indication: STAPHYLOCOCCAL INFECTION
     Dosage: 450 MILLIGRAM, BID
     Route: 048
     Dates: start: 2017

REACTIONS (10)
  - Renal failure [Recovered/Resolved]
  - Haemolytic anaemia [Recovered/Resolved]
  - Respiratory failure [Recovered/Resolved]
  - Liver injury [Recovered/Resolved]
  - C-reactive protein increased [Recovered/Resolved]
  - Hypersensitivity [Recovered/Resolved]
  - Acute hepatic failure [Recovered/Resolved]
  - Metabolic acidosis [Recovered/Resolved]
  - Alveolitis allergic [Recovered/Resolved]
  - Medication error [Unknown]
